FAERS Safety Report 6278337-3 (Version None)
Quarter: 2009Q3

REPORT INFORMATION
  Report Type: 
  Country: None (occurrence: None)
  Receive Date: 20090722
  Receipt Date: 20090709
  Transmission Date: 20100115
  Serious: Yes (Other)
  Sender: FDA-Public Use
  Company Number: US-PFIZER INC-2009207395

PATIENT
  Age: 53 Year
  Sex: Female
  Weight: 45 kg

DRUGS (6)
  1. PHENYTOIN AND PHENYTOIN SODIUM [Suspect]
     Indication: CONVULSION PROPHYLAXIS
     Dosage: 1000 MG, UNK
     Route: 042
     Dates: start: 20070602, end: 20070602
  2. PHENYTOIN AND PHENYTOIN SODIUM [Suspect]
     Dosage: 300 MG, 1X/DAY
     Dates: start: 20070603, end: 20070605
  3. CLINDAMYCIN [Concomitant]
     Dosage: 900 MG, EVERY 8 HRS
     Route: 042
     Dates: start: 20070601, end: 20070605
  4. FAMOTIDINE [Concomitant]
     Dosage: 20 MG, EVERY 12 HOURS
     Route: 042
     Dates: start: 20070601, end: 20070612
  5. METOCLOPRAMIDE [Concomitant]
     Dosage: 10 MG, AT BEDTIME
     Route: 042
     Dates: start: 20070603, end: 20070604
  6. HEPARIN [Concomitant]
     Dosage: 5000 UNITS, EVERY 12 HOURS
     Route: 058
     Dates: start: 20070601, end: 20070612

REACTIONS (2)
  - APHASIA [None]
  - THERAPEUTIC AGENT TOXICITY [None]
